FAERS Safety Report 6325926-3 (Version None)
Quarter: 2009Q3

REPORT INFORMATION
  Report Type: 
  Country: None (occurrence: None)
  Receive Date: 20090824
  Receipt Date: 20090819
  Transmission Date: 20100115
  Serious: Yes (Other)
  Sender: FDA-Public Use
  Company Number: TR-BRISTOL-MYERS SQUIBB COMPANY-14748099

PATIENT
  Age: 60 Year
  Sex: Female
  Weight: 48 kg

DRUGS (2)
  1. IXEMPRA KIT [Suspect]
     Indication: BREAST CANCER METASTATIC
     Route: 042
     Dates: start: 20090205
  2. HERCEPTIN [Concomitant]
     Dates: start: 20090205

REACTIONS (1)
  - DUODENAL PERFORATION [None]
